FAERS Safety Report 10382081 (Version 1)
Quarter: 2014Q3

REPORT INFORMATION
  Report Type: Spontaneous
  Country: US (occurrence: US)
  Receive Date: 20140813
  Receipt Date: 20140813
  Transmission Date: 20150326
  Serious: Yes (Other)
  Sender: FDA-Public Use
  Company Number: US-ACTAVIS-2014-17365

PATIENT
  Age: 89 Year
  Sex: Female

DRUGS (2)
  1. DIPHENHYDRAMINE (WATSON LABORATORIES) [Suspect]
     Active Substance: DIPHENHYDRAMINE
     Indication: HYPERSENSITIVITY
     Dosage: 25 MG, QPM
     Route: 065
  2. AMANTADINE HCL [Suspect]
     Active Substance: AMANTADINE HYDROCHLORIDE
     Indication: INFLUENZA
     Dosage: 100 MG, BID
     Route: 065

REACTIONS (3)
  - Prescribed overdose [Recovered/Resolved]
  - Mania [Recovering/Resolving]
  - Delirium [Recovered/Resolved]
